FAERS Safety Report 6543370-0 (Version None)
Quarter: 2010Q1

REPORT INFORMATION
  Report Type: 
  Country: None (occurrence: None)
  Receive Date: 20100120
  Receipt Date: 20100112
  Transmission Date: 20100710
  Serious: Yes (Other)
  Sender: FDA-Public Use
  Company Number: US-JNJFOC-20060906186

PATIENT
  Sex: Female
  Weight: 94.12 kg

DRUGS (3)
  1. RISPERDAL [Suspect]
     Indication: DEPENDENT PERSONALITY DISORDER
  2. RISPERDAL [Suspect]
     Indication: DEPRESSION
  3. RISPERDAL [Suspect]
     Indication: BIPOLAR DISORDER

REACTIONS (3)
  - TARDIVE DYSKINESIA [None]
  - TYPE 1 DIABETES MELLITUS [None]
  - WEIGHT INCREASED [None]
